FAERS Safety Report 12580769 (Version 1)
Quarter: 2016Q3

REPORT INFORMATION
  Report Type: Not Available
  Country: None (occurrence: US)
  Receive Date: 20160721
  Receipt Date: 20160721
  Transmission Date: 20161109
  Serious: No
  Sender: FDA-Public Use
  Company Number: US-AKORN-35102

PATIENT
  Sex: Female

DRUGS (1)
  1. LATANOPROST OPHTHALMIC SOLUTION, 0.005% [Suspect]
     Active Substance: LATANOPROST

REACTIONS (1)
  - Administration site rash [Unknown]
